FAERS Safety Report 9659514 (Version 2)
Quarter: 2013Q4

REPORT INFORMATION
  Report Type: Report from Study
  Country: ID (occurrence: ID)
  Receive Date: 20131031
  Receipt Date: 20131218
  Transmission Date: 20140711
  Serious: Yes (Death)
  Sender: FDA-Public Use
  Company Number: PHHY2013ID122705

PATIENT
  Age: 23 Year
  Sex: Male

DRUGS (1)
  1. GLIVEC [Suspect]
     Indication: CHRONIC MYELOID LEUKAEMIA
     Dosage: 100 MG, QID
     Route: 048
     Dates: start: 20130807, end: 20130906

REACTIONS (4)
  - Gastrointestinal haemorrhage [Fatal]
  - Blast crisis in myelogenous leukaemia [Fatal]
  - Myalgia [Unknown]
  - Arthralgia [Unknown]
